FAERS Safety Report 22084621 (Version 1)
Quarter: 2023Q1

REPORT INFORMATION
  Report Type: Spontaneous
  Country: CN (occurrence: CN)
  Receive Date: 20230310
  Receipt Date: 20230310
  Transmission Date: 20230417
  Serious: Yes (Other)
  Sender: FDA-Public Use
  Company Number: CN-009507513-2303CHN003064

PATIENT
  Age: 86 Year
  Sex: Male
  Weight: 50 kg

DRUGS (4)
  1. JANUVIA [Suspect]
     Active Substance: SITAGLIPTIN PHOSPHATE
     Indication: Type 2 diabetes mellitus
     Dosage: 0.1G, DAY
     Route: 048
     Dates: start: 20190227, end: 20190307
  2. COLCHICINE [Suspect]
     Active Substance: COLCHICINE
     Indication: Gout
     Dosage: 0.5 MILLIGRAM, QD
     Route: 048
     Dates: start: 20190227, end: 20190307
  3. FEBUXOSTAT [Suspect]
     Active Substance: FEBUXOSTAT
     Indication: Gout
     Dosage: 20 MILLIGRAM, QD
     Route: 048
     Dates: start: 20190303, end: 20190307
  4. YI MAI GE [Concomitant]
     Indication: Pericardial effusion
     Dosage: 5 MILLIGRAM, BID
     Route: 048
     Dates: start: 20190227, end: 20190307

REACTIONS (4)
  - Nephropathy toxic [Recovering/Resolving]
  - Type 2 diabetes mellitus [Unknown]
  - Gout [Unknown]
  - Hyperuricaemia [Unknown]

NARRATIVE: CASE EVENT DATE: 20190101
